FAERS Safety Report 14813345 (Version 2)
Quarter: 2018Q2

REPORT INFORMATION
  Report Type: Spontaneous
  Country: US (occurrence: US)
  Receive Date: 20180426
  Receipt Date: 20180524
  Transmission Date: 20180711
  Serious: No
  Sender: FDA-Public Use
  Company Number: US-UNITED THERAPEUTICS-UNT-2018-005571

PATIENT
  Sex: Female
  Weight: 92.52 kg

DRUGS (5)
  1. REMODULIN [Suspect]
     Active Substance: TREPROSTINIL
     Dosage: UNK
     Route: 041
  2. REMODULIN [Suspect]
     Active Substance: TREPROSTINIL
     Indication: PULMONARY ARTERIAL HYPERTENSION
     Dosage: 0.0926 ?G/KG, CONTINUING
     Route: 041
     Dates: start: 20120731
  3. REMODULIN [Suspect]
     Active Substance: TREPROSTINIL
     Dosage: 45 ML/ 24 HOURS
     Route: 041
  4. TRACLEER [Concomitant]
     Active Substance: BOSENTAN
     Indication: PRODUCT USED FOR UNKNOWN INDICATION
     Route: 065
  5. REMODULIN [Suspect]
     Active Substance: TREPROSTINIL
     Dosage: 46 ML/ 24 HOURS
     Route: 041

REACTIONS (10)
  - Dyspnoea [Unknown]
  - Diarrhoea [Not Recovered/Not Resolved]
  - Headache [Unknown]
  - Depression [Unknown]
  - Erythema [Unknown]
  - Dizziness postural [Unknown]
  - Palpitations [Unknown]
  - Flushing [Unknown]
  - Somnolence [Unknown]
  - Fatigue [Unknown]
